FAERS Safety Report 6648927-4 (Version None)
Quarter: 2010Q1

REPORT INFORMATION
  Report Type: 
  Country: None (occurrence: None)
  Receive Date: 20100324
  Receipt Date: 20100313
  Transmission Date: 20100710
  Serious: Yes (Other)
  Sender: FDA-Public Use
  Company Number: AU-PFIZER INC-2010032535

PATIENT
  Age: 55 Year
  Sex: Male

DRUGS (1)
  1. CHAMPIX [Suspect]
     Dosage: 1 MG, UNK

REACTIONS (3)
  - ABASIA [None]
  - MALAISE [None]
  - MUSCULAR WEAKNESS [None]
